FAERS Safety Report 4565413-6 (Version None)
Quarter: 2005Q1

REPORT INFORMATION
  Report Type: 
  Country: None (occurrence: None)
  Receive Date: 20050126
  Receipt Date: 20031209
  Transmission Date: 20050727
  Serious: Yes (Hospitalization)
  Sender: FDA-Public Use
  Company Number: 2003UW16269

PATIENT
  Age: 53 Year
  Sex: Male

DRUGS (3)
  1. IRESSA [Suspect]
     Indication: BRONCHIAL CARCINOMA
     Dosage: 250 MG PO
     Route: 048
  2. IRESSA [Suspect]
     Indication: BRONCHIAL CARCINOMA
     Dosage: 250 MG PO
     Route: 048
  3. ZANTAC [Concomitant]

REACTIONS (1)
  - HEPATITIS [None]
